FAERS Safety Report 25118414 (Version 1)
Quarter: 2025Q1

REPORT INFORMATION
  Report Type: Spontaneous
  Country: ES (occurrence: ES)
  Receive Date: 20250325
  Receipt Date: 20250325
  Transmission Date: 20250409
  Serious: Yes (Other)
  Sender: NOVITIUM PHARMA
  Company Number: ES-NOVITIUMPHARMA-2025ESNVP00748

PATIENT
  Sex: Male

DRUGS (20)
  1. TRIMETHOPRIM [Suspect]
     Active Substance: TRIMETHOPRIM
     Indication: Pulmonary nocardiosis
     Route: 048
  2. SULFAMETHOXAZOLE\TRIMETHOPRIM [Suspect]
     Active Substance: SULFAMETHOXAZOLE\TRIMETHOPRIM
     Indication: Pulmonary nocardiosis
     Route: 048
  3. OMEPRAZOLE [Concomitant]
     Active Substance: OMEPRAZOLE
     Indication: Constipation
  4. POLYETHYLENE GLYCOLS [Concomitant]
     Active Substance: POLYETHYLENE GLYCOLS
     Indication: Constipation
  5. MIRTAZAPINE [Concomitant]
     Active Substance: MIRTAZAPINE
     Indication: Depression
  6. APIXABAN [Concomitant]
     Active Substance: APIXABAN
     Indication: Product used for unknown indication
  7. ALPRAZOLAM [Concomitant]
     Active Substance: ALPRAZOLAM
     Indication: Product used for unknown indication
  8. TAMSULOSIN [Concomitant]
     Active Substance: TAMSULOSIN
     Indication: Product used for unknown indication
  9. VINORELBINE [Concomitant]
     Active Substance: VINORELBINE TARTRATE
     Indication: Malignant pleural effusion
  10. CARBOPLATIN [Concomitant]
     Active Substance: CARBOPLATIN
     Indication: Malignant pleural effusion
  11. PEMETREXED [Concomitant]
     Active Substance: PEMETREXED
     Indication: Malignant pleural effusion
  12. PEMBROLIZUMAB [Concomitant]
     Active Substance: PEMBROLIZUMAB
     Indication: Malignant pleural effusion
  13. PACLITAXEL [Concomitant]
     Active Substance: PACLITAXEL
     Indication: Malignant pleural effusion
  14. CEFDITOREN [Concomitant]
     Active Substance: CEFDITOREN
     Indication: Evidence based treatment
  15. AMIKACIN [Concomitant]
     Active Substance: AMIKACIN
     Indication: Pulmonary nocardiosis
  16. CEFTRIAXONE [Concomitant]
     Active Substance: CEFTRIAXONE
     Indication: Pulmonary nocardiosis
  17. IMIPENEM [Concomitant]
     Active Substance: IMIPENEM
     Indication: Pulmonary nocardiosis
  18. LINEZOLID [Concomitant]
     Active Substance: LINEZOLID
     Indication: Pulmonary nocardiosis
     Route: 042
  19. LINEZOLID [Concomitant]
     Active Substance: LINEZOLID
  20. LINEZOLID [Concomitant]
     Active Substance: LINEZOLID

REACTIONS (1)
  - Hepatotoxicity [Unknown]
